FAERS Safety Report 8583846-8 (Version None)
Quarter: 2012Q3

REPORT INFORMATION
  Report Type: 
  Country: None (occurrence: None)
  Receive Date: 20120810
  Receipt Date: 20120801
  Transmission Date: 20120928
  Serious: Yes (Life-Threatening, Hospitalization, Other)
  Sender: FDA-Public Use
  Company Number: US-009507513-1203USA01455

PATIENT

DRUGS (16)
  1. LOSARTAN POTASSIUM AND HYDROCHLOROTHIAZIDE [Concomitant]
     Dosage: 100-25
     Route: 048
  2. LIORAM [Concomitant]
     Dosage: 15 MG, HS
     Route: 048
  3. ALFUZOSIN HYDROCHLORIDE [Concomitant]
     Dosage: 10 MG, QD
     Route: 048
  4. FLECTOR [Concomitant]
     Dosage: UNK %, UNK
  5. LIPITOR [Concomitant]
     Dosage: 20 MG, QD
     Route: 048
  6. AMOXICILLIN [Concomitant]
     Dosage: 875 MG, BID
     Route: 048
  7. ACETAMINOPHEN/HYDROCODONE BITARTRATE [Concomitant]
     Dosage: 1-2 TABLETS EVERY 4 HOURS
     Route: 048
  8. LANTUS [Concomitant]
     Dosage: 50 TO 55
     Route: 058
  9. ANDROGEL [Concomitant]
     Dosage: 2 PUMPS DAILY TRANSDERMAL
  10. DIOVAN HCT [Concomitant]
     Indication: ESSENTIAL HYPERTENSION
     Dosage: 1 TABLET DAILY
     Route: 048
     Dates: start: 20120326
  11. LOVAZA [Concomitant]
     Dosage: 1 G, BID
     Route: 048
  12. SINGULAIR [Concomitant]
     Dosage: 10 MG, UNK
     Route: 048
  13. JANUVIA [Suspect]
     Indication: TYPE 2 DIABETES MELLITUS
     Dosage: 100 MG, QD
     Route: 048
  14. ALPRAZOLAM [Concomitant]
     Dosage: 1 MG, TID
     Route: 048
  15. LYRICA [Concomitant]
     Dosage: 100 MG, TID
     Route: 048
  16. NOVOLOG [Concomitant]
     Dosage: 4U AM, 16U PM
     Route: 058

REACTIONS (11)
  - RHEUMATOID ARTHRITIS [None]
  - ROTATOR CUFF SYNDROME [None]
  - SINUS DISORDER [None]
  - SPLEEN DISORDER [None]
  - ANXIETY [None]
  - DIABETES MELLITUS INADEQUATE CONTROL [None]
  - LYMPHOCYTOSIS [None]
  - GOITRE [None]
  - ARTHROPATHY [None]
  - THYROID CANCER [None]
  - PAIN IN EXTREMITY [None]
